FAERS Safety Report 11872226 (Version 1)
Quarter: 2015Q4

REPORT INFORMATION
  Report Type: Spontaneous
  Country: JP (occurrence: JP)
  Receive Date: 20151228
  Receipt Date: 20151228
  Transmission Date: 20160305
  Serious: No
  Sender: FDA-Public Use
  Company Number: JP-TAKEDA-2015TJP022935

PATIENT
  Sex: Female

DRUGS (1)
  1. TAKEPRON CAPSULES 15 [Suspect]
     Active Substance: LANSOPRAZOLE
     Indication: GASTROOESOPHAGEAL REFLUX DISEASE
     Dosage: UNK, QD
     Route: 048

REACTIONS (3)
  - Abnormal sensation in eye [Unknown]
  - Body temperature increased [Unknown]
  - Somnolence [Unknown]
